FAERS Safety Report 8076067-9 (Version None)
Quarter: 2012Q1

REPORT INFORMATION
  Report Type: 
  Country: None (occurrence: None)
  Receive Date: 20120127
  Receipt Date: 20110708
  Transmission Date: 20120608
  Serious: No
  Sender: FDA-Public Use
  Company Number: US-GLAXOSMITHKLINE-A0936066A

PATIENT
  Age: 45 Year
  Sex: Female

DRUGS (2)
  1. WELLBUTRIN [Suspect]
     Indication: MENOPAUSE
     Dosage: 100MG TWICE PER DAY
     Route: 048
     Dates: start: 20101001, end: 20110701
  2. RITALIN [Concomitant]

REACTIONS (1)
  - DRUG INEFFECTIVE [None]
